FAERS Safety Report 5841469-5 (Version None)
Quarter: 2008Q3

REPORT INFORMATION
  Report Type: 
  Country: None (occurrence: None)
  Receive Date: 20080812
  Receipt Date: 20080731
  Transmission Date: 20090109
  Serious: Yes (Hospitalization)
  Sender: FDA-Public Use
  Company Number: US-KINGPHARMUSA00001-K200800886

PATIENT

DRUGS (13)
  1. ALTACE [Suspect]
     Dosage: 5 MG, QD
     Route: 048
     Dates: start: 20080227, end: 20080402
  2. QUILONUM                           /00033703/ [Suspect]
     Dosage: 1125 MG, QD
     Route: 048
     Dates: start: 19990101, end: 20080402
  3. SPIRONOLACTONE [Suspect]
     Dosage: 25 MG, QD
     Route: 048
     Dates: start: 20080227, end: 20080402
  4. TORSEMIDE [Suspect]
     Dosage: 10 MG, QD
     Route: 048
     Dates: start: 20080227, end: 20080402
  5. FLUVOXAMIN [Concomitant]
     Dosage: 25 MG, UNK
     Route: 048
     Dates: end: 20080402
  6. CLOPIDOGREL [Concomitant]
     Dosage: 75 MG, UNK
     Route: 048
     Dates: start: 20080227, end: 20080402
  7. NEBILET [Concomitant]
     Dosage: 5 MG, UNK
     Route: 048
     Dates: start: 20080227, end: 20080402
  8. SIMVAHEXAL [Concomitant]
     Dosage: 20 MG, UNK
     Route: 048
     Dates: start: 20080227
  9. PANTOZOL                           /01263202/ [Concomitant]
     Dosage: 40 MG, UNK
     Route: 048
     Dates: start: 20080227
  10. SPRAY NOS [Concomitant]
     Indication: CHRONIC OBSTRUCTIVE PULMONARY DISEASE
  11. CLINDAMYCIN HCL [Concomitant]
     Dosage: UNK, UNK
     Dates: end: 20080325
  12. HYDROCHLOROTHIAZIDE [Concomitant]
     Dosage: 12.5 MG, QD
     Route: 048
  13. ENALAPRIL MALEATE [Concomitant]
     Dosage: 20 MG, QD
     Route: 048

REACTIONS (12)
  - ATAXIA [None]
  - COGNITIVE DISORDER [None]
  - DISORIENTATION [None]
  - DRUG INTERACTION [None]
  - DYSARTHRIA [None]
  - GAIT DISTURBANCE [None]
  - GENERAL PHYSICAL CONDITION ABNORMAL [None]
  - HYPERKINESIA [None]
  - PERSONALITY CHANGE [None]
  - POLLAKIURIA [None]
  - SOMNOLENCE [None]
  - THERAPEUTIC AGENT TOXICITY [None]
